FAERS Safety Report 8842274 (Version 2)
Quarter: 2012Q4

REPORT INFORMATION
  Report Type: 
  Country: US (occurrence: US)
  Receive Date: 20121016
  Receipt Date: 20121018
  Transmission Date: 20130627
  Serious: No
  Sender: FDA-Public Use
  Company Number: US-009507513-1210USA003345

PATIENT
  Age: 79 Year
  Sex: Female
  Weight: 56.69 kg

DRUGS (8)
  1. CLARITIN REDITABS [Suspect]
     Indication: RHINORRHOEA
     Dosage: UNK, Unknown
     Route: 048
     Dates: start: 2011
  2. CLARITIN REDITABS [Suspect]
     Indication: LACRIMATION INCREASED
  3. CLARITIN REDITABS [Suspect]
     Indication: SNEEZING
  4. CLARITIN REDITABS [Suspect]
     Indication: HYPERSENSITIVITY
  5. METFORMIN [Concomitant]
     Indication: DIABETES MELLITUS
     Dosage: UNK, Unknown
  6. SINGULAIR [Concomitant]
     Indication: PRODUCT USED FOR UNKNOWN INDICATION
     Dosage: UNK, Unknown
  7. VERAPAMIL [Concomitant]
     Indication: BLOOD PRESSURE
     Dosage: UNK, Unknown
  8. PULMICORT FLEXHALER [Concomitant]
     Indication: ASTHMA
     Dosage: UNK, Unknown

REACTIONS (1)
  - Drug ineffective [Unknown]
